FAERS Safety Report 7740722-8 (Version None)
Quarter: 2011Q3

REPORT INFORMATION
  Report Type: 
  Country: None (occurrence: None)
  Receive Date: 20110909
  Receipt Date: 20110830
  Transmission Date: 20111222
  Serious: Yes (Other)
  Sender: FDA-Public Use
  Company Number: FI-JNJFOC-20110900346

PATIENT
  Age: 29 Year
  Sex: Female

DRUGS (7)
  1. REMICADE [Suspect]
     Route: 042
     Dates: start: 20110817, end: 20110817
  2. REMICADE [Suspect]
     Route: 042
     Dates: start: 20110620
  3. AZAMUN [Concomitant]
     Dosage: 1X3
  4. REMICADE [Suspect]
     Indication: COLITIS ULCERATIVE
     Route: 042
     Dates: start: 20100503
  5. PREDNISOLONE [Concomitant]
     Dosage: 1X1
  6. ASACOL [Concomitant]
     Dosage: 2X2
  7. SULFASALAZINE [Concomitant]
     Dosage: 1X1

REACTIONS (3)
  - DYSPNOEA [None]
  - ARTHROPATHY [None]
  - INFUSION RELATED REACTION [None]
